FAERS Safety Report 10732115 (Version 1)
Quarter: 2015Q1

REPORT INFORMATION
  Report Type: Spontaneous
  Country: US (occurrence: None)
  Receive Date: 20150120
  Receipt Date: 20150120
  Transmission Date: 20150721
  Serious: Yes (Death)
  Sender: FDA-Public Use
  Company Number: 2015010081

PATIENT
  Age: 23 Year
  Sex: Female

DRUGS (4)
  1. FENTANYL (FENTANYL) [Suspect]
     Active Substance: FENTANYL
  2. BUPRENORPHINE/NALOXONE [Suspect]
     Active Substance: BUPRENORPHINE\NALOXONE
  3. HEROIN [Suspect]
     Active Substance: DIACETYLMORPHINE
  4. ALPRAZOLAM (ALPRAZOLAM) [Suspect]
     Active Substance: ALPRAZOLAM

REACTIONS (5)
  - Cardiac arrest [None]
  - Exposure via ingestion [None]
  - Drug abuse [None]
  - Exposure via inhalation [None]
  - Respiratory arrest [None]

NARRATIVE: CASE EVENT DATE: 2013
